FAERS Safety Report 6568276-2 (Version None)
Quarter: 2010Q1

REPORT INFORMATION
  Report Type: 
  Country: None (occurrence: None)
  Receive Date: 20100128
  Receipt Date: 20070726
  Transmission Date: 20100710
  Serious: Yes (Other)
  Sender: FDA-Public Use
  Company Number: 1000011466

PATIENT
  Age: 36 Year
  Sex: Male

DRUGS (1)
  1. ESCITALOPRAM [Suspect]
     Indication: TENSION
     Dosage: 10 MG 910 MG, 1 IN 1 D), ORAL; 20 MG (20 MG, 1 IN 1 D), ORAL
     Route: 048
     Dates: start: 20061201

REACTIONS (4)
  - FATIGUE [None]
  - RETINAL DISORDER [None]
  - STRESS [None]
  - VISUAL IMPAIRMENT [None]
